FAERS Safety Report 25023817 (Version 1)
Quarter: 2025Q1

REPORT INFORMATION
  Report Type: Report from Study
  Country: RO (occurrence: RO)
  Receive Date: 20250228
  Receipt Date: 20250228
  Transmission Date: 20250408
  Serious: Yes (Hospitalization, Other)
  Sender: ALEXION PHARMACEUTICALS
  Company Number: RO-AstraZeneca-CH-00815682A

PATIENT

DRUGS (1)
  1. OSIMERTINIB [Suspect]
     Active Substance: OSIMERTINIB
     Indication: Bronchopulmonary disease
     Dosage: 80 MILLIGRAM, QD

REACTIONS (4)
  - White blood cell count increased [Unknown]
  - Platelet count decreased [Unknown]
  - Pleural effusion [Unknown]
  - General physical health deterioration [Unknown]
